FAERS Safety Report 5605888-4 (Version None)
Quarter: 2008Q1

REPORT INFORMATION
  Report Type: 
  Country: None (occurrence: None)
  Receive Date: 20080125
  Receipt Date: 20080125
  Transmission Date: 20080703
  Serious: Yes (Death)
  Sender: FDA-Public Use
  Company Number: None

PATIENT
  Age: 70 Year
  Sex: Female
  Weight: 100 kg

DRUGS (7)
  1. AMIODARONE HCL [Suspect]
     Indication: ATRIAL FIBRILLATION
     Dosage: 200MG QD PO
     Route: 048
     Dates: start: 20070814, end: 20071203
  2. ZOLOFT [Concomitant]
  3. ZYRTEC [Concomitant]
  4. LIPITOR [Concomitant]
  5. DIAZEPAM [Concomitant]
  6. PREDNISONE TAB [Concomitant]
  7. AUGMENTIN '250' [Concomitant]

REACTIONS (16)
  - ASPERGILLOSIS [None]
  - ATAXIA [None]
  - CHOLELITHIASIS [None]
  - FALL [None]
  - FUNGUS SPUTUM TEST POSITIVE [None]
  - GENERAL PHYSICAL HEALTH DETERIORATION [None]
  - ILL-DEFINED DISORDER [None]
  - INTERSTITIAL LUNG DISEASE [None]
  - LIVER FUNCTION TEST ABNORMAL [None]
  - LUNG DISORDER [None]
  - MEGACOLON [None]
  - PLATELET COUNT DECREASED [None]
  - PNEUMOTHORAX [None]
  - RENAL IMPAIRMENT [None]
  - RESPIRATORY FAILURE [None]
  - UPPER RESPIRATORY TRACT INFECTION [None]
